FAERS Safety Report 5007424-2 (Version None)
Quarter: 2006Q2

REPORT INFORMATION
  Report Type: 
  Country: None (occurrence: None)
  Receive Date: 20060518
  Receipt Date: 20060518
  Transmission Date: 20061013
  Serious: Yes (Life-Threatening)
  Sender: FDA-Public Use
  Company Number: None

PATIENT
  Sex: Male

DRUGS (12)
  1. HALOPERIDOL [Suspect]
     Indication: SCHIZOPHRENIA
     Dates: start: 20060316, end: 20060321
  2. CLOZAPINE [Concomitant]
  3. GLYBURIDE [Concomitant]
  4. LISINOPRIL [Concomitant]
  5. BENZTROPINE MESYLATE [Concomitant]
  6. VIT E [Concomitant]
  7. MULTIVITAMINS WITH MINERALS [Concomitant]
  8. ASPIRIN [Concomitant]
  9. PSYLLIUM [Concomitant]
  10. LORAZEPAM [Concomitant]
  11. METFORMIN [Concomitant]
  12. SIMVASTATIN [Concomitant]

REACTIONS (5)
  - BLOOD CREATINE PHOSPHOKINASE INCREASED [None]
  - BLOOD PRESSURE SYSTOLIC INCREASED [None]
  - HAEMATEMESIS [None]
  - MUSCLE RIGIDITY [None]
  - POSTURING [None]
